FAERS Safety Report 23343404 (Version 8)
Quarter: 2024Q2

REPORT INFORMATION
  Report Type: Spontaneous
  Country: US (occurrence: US)
  Receive Date: 20231227
  Receipt Date: 20240425
  Transmission Date: 20240716
  Serious: Yes (Other)
  Sender: FDA-Public Use
  Company Number: US-PFIZER INC-PV202300203862

PATIENT
  Age: 70 Year
  Sex: Female

DRUGS (2)
  1. IBRANCE [Suspect]
     Active Substance: PALBOCICLIB
     Dosage: 125 MG
  2. IBRANCE [Suspect]
     Active Substance: PALBOCICLIB
     Dosage: 100 MG

REACTIONS (13)
  - Cataract [Unknown]
  - Tongue ulceration [Recovered/Resolved]
  - Joint swelling [Recovering/Resolving]
  - Paraesthesia oral [Unknown]
  - Aphthous ulcer [Unknown]
  - Diarrhoea [Unknown]
  - Dry skin [Unknown]
  - Alopecia [Unknown]
  - Nausea [Recovered/Resolved]
  - Dysgeusia [Unknown]
  - White blood cell count decreased [Unknown]
  - Neutrophil count decreased [Unknown]
  - Haemoglobin decreased [Unknown]
